FAERS Safety Report 7079217-6 (Version None)
Quarter: 2010Q4

REPORT INFORMATION
  Report Type: 
  Country: None (occurrence: None)
  Receive Date: 20101102
  Receipt Date: 20101026
  Transmission Date: 20110411
  Serious: Yes (Other)
  Sender: FDA-Public Use
  Company Number: DE-ROCHE-737083

PATIENT
  Sex: Female

DRUGS (2)
  1. TRASTUZUMAB [Suspect]
     Indication: BREAST CANCER
     Dosage: 8 MG/KG LOADING DOSE THEN 6 MG/KG EVERY 3 WEEKS FOR 52 WEEKS.
     Route: 042
     Dates: start: 20080215, end: 20090206
  2. LAPATINIB [Suspect]
     Indication: BREAST CANCER
     Route: 048
     Dates: start: 20080215

REACTIONS (1)
  - ALANINE AMINOTRANSFERASE INCREASED [None]
